FAERS Safety Report 8223751-X (Version None)
Quarter: 2012Q1

REPORT INFORMATION
  Report Type: 
  Country: None (occurrence: None)
  Receive Date: 20120320
  Receipt Date: 20120320
  Transmission Date: 20120608
  Serious: Yes (Hospitalization)
  Sender: FDA-Public Use
  Company Number: None

PATIENT
  Age: 65 Year
  Sex: Male

DRUGS (2)
  1. MORPHINE [Suspect]
     Indication: PAIN
     Dosage: 60 MG QID PO
     Route: 048
     Dates: start: 20100603, end: 20110616
  2. ACETAMINOPHEN AND HYDROCODONE BITARTRATE [Suspect]
     Indication: PAIN
     Dosage: 1-2 TAB TID PO
     Route: 048
     Dates: start: 20060413, end: 20110616

REACTIONS (2)
  - OVERDOSE [None]
  - RESPIRATORY FAILURE [None]
